FAERS Safety Report 7354770-3 (Version None)
Quarter: 2011Q1

REPORT INFORMATION
  Report Type: 
  Country: None (occurrence: None)
  Receive Date: 20110301
  Receipt Date: 20110218
  Transmission Date: 20110831
  Serious: Yes (Other)
  Sender: FDA-Public Use
  Company Number: AEUSA201100033

PATIENT
  Age: 70 Year
  Sex: Male

DRUGS (9)
  1. CEREFOLIN NAC [Concomitant]
  2. VITAMIN D [Concomitant]
  3. FINASTERIDE [Concomitant]
  4. LIPITOR [Concomitant]
  5. KLONOPIN [Concomitant]
  6. CALTRATE /00108001/ [Concomitant]
  7. AUGMENTIN /01000301/ [Concomitant]
  8. GAMUNEX [Suspect]
     Indication: CHRONIC INFLAMMATORY DEMYELINATING POLYRADICULONEUROPATHY
     Dosage: ;IV
     Route: 042
     Dates: start: 20110103, end: 20110206
  9. FLOMAX /01280302/ [Concomitant]

REACTIONS (7)
  - SKIN EXFOLIATION [None]
  - SCAB [None]
  - SKIN REACTION [None]
  - SKIN ULCER [None]
  - ERYTHEMA [None]
  - RASH PRURITIC [None]
  - DRY SKIN [None]
